FAERS Safety Report 17680574 (Version 3)
Quarter: 2021Q2

REPORT INFORMATION
  Report Type: Spontaneous
  Country: US (occurrence: US)
  Receive Date: 20200417
  Receipt Date: 20210421
  Transmission Date: 20210716
  Serious: Yes (Hospitalization, Other)
  Sender: FDA-Public Use
  Company Number: US-GLAXOSMITHKLINE-US2020065583

PATIENT
  Age: 63 Year
  Sex: Female
  Weight: 61.22 kg

DRUGS (2)
  1. NUCALA [Suspect]
     Active Substance: MEPOLIZUMAB
     Indication: PRODUCT USED FOR UNKNOWN INDICATION
     Dosage: 100 MG, Z EVERY 28 DAYS
  2. NUCALA [Suspect]
     Active Substance: MEPOLIZUMAB
     Indication: PRODUCT USED FOR UNKNOWN INDICATION
     Dosage: UNK
     Route: 065
     Dates: start: 201903

REACTIONS (7)
  - Pneumonia [Recovered/Resolved]
  - Pneumothorax [Recovered/Resolved]
  - Arthritis [Recovered/Resolved]
  - Product dose omission issue [Unknown]
  - Bronchitis [Recovered/Resolved]
  - Arthritis infective [Recovered/Resolved with Sequelae]
  - Influenza [Recovered/Resolved]

NARRATIVE: CASE EVENT DATE: 20200204
